FAERS Safety Report 14958407 (Version 1)
Quarter: 2018Q2

REPORT INFORMATION
  Report Type: Spontaneous
  Country: US (occurrence: US)
  Receive Date: 20180531
  Receipt Date: 20180531
  Transmission Date: 20180711
  Serious: Yes (Disabling)
  Sender: FDA-Public Use
  Company Number: US-ALSI-201800352

PATIENT
  Age: 57 Year
  Sex: Male

DRUGS (3)
  1. PREDNISONE. [Concomitant]
     Active Substance: PREDNISONE
  2. DEXAMETHASONE. [Concomitant]
     Active Substance: DEXAMETHASONE
  3. OXYGEN. [Suspect]
     Active Substance: OXYGEN
     Indication: DEAFNESS NEUROSENSORY

REACTIONS (3)
  - Myopia [Recovering/Resolving]
  - Off label use [Recovering/Resolving]
  - Therapeutic response unexpected [Recovering/Resolving]
